FAERS Safety Report 10037115 (Version 1)
Quarter: 2014Q1

REPORT INFORMATION
  Report Type: Spontaneous
  Country: US (occurrence: None)
  Receive Date: 20140324
  Receipt Date: 20140324
  Transmission Date: 20141002
  Serious: Yes (Hospitalization, Other)
  Sender: FDA-Public Use
  Company Number: US-ZYDUS-002775

PATIENT
  Age: 80 Year
  Sex: Female

DRUGS (2)
  1. ROPINIROLE [Suspect]
  2. KAVA (KAVA) [Concomitant]

REACTIONS (4)
  - Acute psychosis [None]
  - Hallucination, visual [None]
  - Delusion [None]
  - Food interaction [None]
